FAERS Safety Report 7767317-4 (Version None)
Quarter: 2011Q3

REPORT INFORMATION
  Report Type: 
  Country: None (occurrence: None)
  Receive Date: 20110922
  Receipt Date: 20110325
  Transmission Date: 20111222
  Serious: No
  Sender: FDA-Public Use
  Company Number: US-ASTRAZENECA-2011SE17284

PATIENT
  Age: 41 Year
  Sex: Female
  Weight: 62.1 kg

DRUGS (2)
  1. SEROQUEL XR [Suspect]
     Indication: BIPOLAR DISORDER
     Route: 048
  2. SEROQUEL XR [Suspect]
     Route: 048
     Dates: start: 20101001

REACTIONS (7)
  - FEELING ABNORMAL [None]
  - IRRITABILITY [None]
  - WEIGHT INCREASED [None]
  - ROAD TRAFFIC ACCIDENT [None]
  - VICTIM OF SEXUAL ABUSE [None]
  - NERVOUSNESS [None]
  - DEPRESSION [None]
